FAERS Safety Report 24041727 (Version 1)
Quarter: 2024Q3

REPORT INFORMATION
  Report Type: Spontaneous
  Country: CN (occurrence: CN)
  Receive Date: 20240702
  Receipt Date: 20240702
  Transmission Date: 20241017
  Serious: Yes (Other)
  Sender: JOHNSON AND JOHNSON
  Company Number: CN-BAYER-2024A093992

PATIENT
  Age: 60 Year
  Sex: Male

DRUGS (1)
  1. XARELTO [Suspect]
     Active Substance: RIVAROXABAN
     Indication: Atrial fibrillation
     Dosage: 15 MG, QD
     Route: 048
     Dates: start: 20240425, end: 20240531

REACTIONS (11)
  - Thrombocytopenia [Recovering/Resolving]
  - Acute hepatitis B [Unknown]
  - Pneumonia [Unknown]
  - Cardiomegaly [Unknown]
  - Pyrexia [Unknown]
  - Respiratory rate increased [Unknown]
  - Lymphocyte count decreased [Unknown]
  - Monocyte count decreased [Unknown]
  - Eosinophil count decreased [Unknown]
  - Underdose [Unknown]
  - Prescribed underdose [Unknown]

NARRATIVE: CASE EVENT DATE: 20240425
